FAERS Safety Report 23782536 (Version 1)
Quarter: 2024Q2

REPORT INFORMATION
  Report Type: Spontaneous
  Country: US (occurrence: None)
  Receive Date: 20240424
  Receipt Date: 20240424
  Transmission Date: 20240716
  Serious: No
  Sender: FDA-Public Use
  Company Number: None

PATIENT
  Age: 84 Year
  Sex: Male

DRUGS (2)
  1. BACLOFEN [Suspect]
     Active Substance: BACLOFEN
     Indication: Confusional state
     Dosage: FREQUENCY : TWICE A DAY;?
     Route: 048
     Dates: start: 20230330, end: 20230331
  2. BACLOFEN [Suspect]
     Active Substance: BACLOFEN
     Indication: Hallucination

REACTIONS (2)
  - Confusional state [None]
  - Hallucination [None]

NARRATIVE: CASE EVENT DATE: 20230403
